FAERS Safety Report 9236761 (Version 1)
Quarter: 2013Q2

REPORT INFORMATION
  Report Type: Spontaneous
  Country: US (occurrence: None)
  Receive Date: 20130415
  Receipt Date: 20130415
  Transmission Date: 20140414
  Serious: Yes (Hospitalization)
  Sender: FDA-Public Use
  Company Number: SYM-2013-02773

PATIENT
  Age: 72 Year
  Sex: Female

DRUGS (7)
  1. XENAZINE [Suspect]
     Indication: PRODUCT USED FOR UNKNOWN INDICATION
     Dates: start: 20090903, end: 20100301
  2. XENAZINE [Suspect]
     Indication: PRODUCT USED FOR UNKNOWN INDICATION
     Dates: start: 20090903, end: 20100301
  3. XENAZINE [Suspect]
     Dates: start: 20090903, end: 20100301
  4. XENAZINE [Suspect]
     Dates: start: 20090903, end: 20100301
  5. CYMBALTA [Suspect]
     Dates: start: 20091101, end: 20110901
  6. OXYBUTYNIN [Suspect]
     Indication: PRODUCT USED FOR UNKNOWN INDICATION
     Dates: start: 20071101, end: 20111001
  7. RIVASTIGMINE [Suspect]
     Dates: start: 20110701, end: 20111001

REACTIONS (7)
  - Leukoencephalopathy [None]
  - Iatrogenic injury [None]
  - Cerebral atrophy [None]
  - Cognitive disorder [None]
  - Confusional state [None]
  - Parkinsonism [None]
  - Condition aggravated [None]
